FAERS Safety Report 17485625 (Version 2)
Quarter: 2020Q1

REPORT INFORMATION
  Report Type: Spontaneous
  Country: US (occurrence: US)
  Receive Date: 20200302
  Receipt Date: 20200305
  Transmission Date: 20200409
  Serious: No
  Sender: FDA-Public Use
  Company Number: US-SA-2020SA053797

PATIENT
  Age: 41 Year
  Sex: Female

DRUGS (1)
  1. ADMELOG [Suspect]
     Active Substance: INSULIN LISPRO
     Indication: TYPE 2 DIABETES MELLITUS
     Dosage: 10-12 IU 6 TIMES DAILY
     Route: 065
     Dates: start: 20200221

REACTIONS (3)
  - Wrong technique in device usage process [Unknown]
  - Blood glucose increased [Unknown]
  - Device operational issue [Unknown]
